FAERS Safety Report 6383427-0 (Version None)
Quarter: 2009Q3

REPORT INFORMATION
  Report Type: 
  Country: None (occurrence: None)
  Receive Date: 20090929
  Receipt Date: 20090929
  Transmission Date: 20100115
  Serious: Yes (Other)
  Sender: FDA-Public Use
  Company Number: None

PATIENT

DRUGS (1)
  1. IMMUNE GLOBULIN INTRAVENOUS 10% TALECRIS [Suspect]
     Dosage: 2.5 GRAMS PROTEIN IN 25ML IV
     Route: 042

REACTIONS (1)
  - PRODUCT LABEL ISSUE [None]
